FAERS Safety Report 20834540 (Version 1)
Quarter: 2022Q2

REPORT INFORMATION
  Report Type: Spontaneous
  Country: DK (occurrence: DK)
  Receive Date: 20220516
  Receipt Date: 20220516
  Transmission Date: 20220721
  Serious: Yes (Hospitalization)
  Sender: FDA-Public Use
  Company Number: None

PATIENT
  Age: 68 Year
  Sex: Female

DRUGS (2)
  1. OXYCODONE HYDROCHLORIDE [Suspect]
     Active Substance: OXYCODONE HYDROCHLORIDE
     Indication: Hip fracture
     Dosage: 5 MILLIGRAM, PRN (STRENGTH 5MG)
     Route: 048
     Dates: start: 20220319, end: 20220324
  2. OXYCODONE HYDROCHLORIDE [Suspect]
     Active Substance: OXYCODONE HYDROCHLORIDE
     Indication: Hip fracture
     Dosage: 20 MILLIGRAM, DAILY (DOSE INCREASED FROM 5 MG 2 TIMES A DAY ON 22MAR2022 STRENGTH: 10MG)
     Route: 048
     Dates: start: 20220319, end: 20220324

REACTIONS (3)
  - Prurigo [Recovered/Resolved]
  - Pruritus [Recovered/Resolved]
  - Hyperhidrosis [Recovered/Resolved]

NARRATIVE: CASE EVENT DATE: 20220323
